FAERS Safety Report 8623458-0 (Version None)
Quarter: 2012Q3

REPORT INFORMATION
  Report Type: 
  Country: None (occurrence: None)
  Receive Date: 20120827
  Receipt Date: 20120820
  Transmission Date: 20120928
  Serious: Yes (Other)
  Sender: FDA-Public Use
  Company Number: AU-JNJFOC-20120809874

PATIENT
  Sex: Female

DRUGS (6)
  1. ARIPIPRAZOLE [Suspect]
     Indication: PSYCHOTIC DISORDER
     Dosage: START DATE - PRE PREGNANCY  STOP DATE - 28ND WEEK
     Route: 048
  2. OLANZAPINE [Suspect]
     Indication: PSYCHOTIC DISORDER
     Dosage: STARTED FROM 26TH WEEK OF PREGNANCY
     Route: 048
  3. ZIPRASIDONE HCL [Suspect]
     Indication: PSYCHOTIC DISORDER
     Dosage: START DATE - PRE PREGNANCY STOP DATE - 22ND WEEK
     Route: 048
  4. LITHIUM CARBONATE [Suspect]
     Indication: DRUG THERAPY
     Dosage: START DATE - PRE PREGNANCY  STOP DATE - 22ND WEEK
     Route: 048
  5. METFORMIN HCL [Suspect]
     Indication: GESTATIONAL DIABETES
     Dosage: START DATE - 26TH WEEK   STOP DATE - AT BIRTH
     Route: 048
  6. RISPERIDONE [Suspect]
     Indication: PSYCHOTIC DISORDER
     Dosage: START DATE - PRE PREGNANCY STOP DATE - 22ND WEEK
     Route: 048

REACTIONS (2)
  - MATERNAL EXPOSURE DURING PREGNANCY [None]
  - GESTATIONAL DIABETES [None]
